FAERS Safety Report 8759351 (Version 2)
Quarter: 2012Q4

REPORT INFORMATION
  Report Type: 
  Country: DE (occurrence: DE)
  Receive Date: 20120829
  Receipt Date: 20120829
  Transmission Date: 20130627
  Serious: Yes (Other)
  Sender: FDA-Public Use
  Company Number: DE-JNJFOC-20120802122

PATIENT
  Sex: Female
  Weight: 65 kg

DRUGS (1)
  1. NICORETTE [Suspect]
     Indication: SMOKING CESSATION THERAPY
     Dosage: 2 mg gum, 16-20 gums a day, 32-40 mg a day
     Route: 048
     Dates: start: 201202

REACTIONS (3)
  - Nicotine dependence [Not Recovered/Not Resolved]
  - Overdose [Unknown]
  - Incorrect drug administration duration [Not Recovered/Not Resolved]
